FAERS Safety Report 4751388-3 (Version None)
Quarter: 2005Q3

REPORT INFORMATION
  Report Type: 
  Country: None (occurrence: None)
  Receive Date: 20050822
  Receipt Date: 20050810
  Transmission Date: 20060218
  Serious: Yes (Hospitalization)
  Sender: FDA-Public Use
  Company Number: MEDI-0003598

PATIENT
  Age: 63 Year
  Sex: Female

DRUGS (2)
  1. ETHYOL [Suspect]
     Dosage: 500 MG, 5 WK, SUBCUTANEOUS
     Route: 058
     Dates: start: 20050714, end: 20050728
  2. DIOVANE (VALSARTAN) [Concomitant]

REACTIONS (5)
  - CATHETER RELATED INFECTION [None]
  - INJECTION SITE ERYTHEMA [None]
  - INJECTION SITE SWELLING [None]
  - PYREXIA [None]
  - RASH MACULO-PAPULAR [None]
